FAERS Safety Report 5523539-4 (Version None)
Quarter: 2007Q4

REPORT INFORMATION
  Report Type: 
  Country: None (occurrence: None)
  Receive Date: 20071121
  Receipt Date: 20071114
  Transmission Date: 20080405
  Serious: Yes (Other)
  Sender: FDA-Public Use
  Company Number: FI-JNJFOC-20070604478

PATIENT
  Age: 31 Year
  Sex: Male

DRUGS (3)
  1. RISPERDAL CONSTA [Suspect]
     Indication: DRUG USE FOR UNKNOWN INDICATION
     Route: 030
  2. REMERON [Concomitant]
  3. RIVATRIL [Concomitant]

REACTIONS (4)
  - BASOPHILIA [None]
  - LEUKOCYTOSIS [None]
  - MONOCYTOSIS [None]
  - NEUTROPHILIA [None]
